FAERS Safety Report 11703736 (Version 1)
Quarter: 2015Q4

REPORT INFORMATION
  Report Type: Spontaneous
  Country: US (occurrence: US)
  Receive Date: 20151106
  Receipt Date: 20151106
  Transmission Date: 20160304
  Serious: Yes (Hospitalization)
  Sender: FDA-Public Use
  Company Number: US-HOSPIRA-3063370

PATIENT
  Age: 72 Year
  Sex: Female
  Weight: 51.34 kg

DRUGS (5)
  1. 5-FLUOROURACIL                     /00098801/ [Suspect]
     Active Substance: FLUOROURACIL
     Indication: COLON CANCER
     Dosage: OVER 46-48 HOURS
     Route: 042
     Dates: start: 20150401, end: 20150401
  2. CALCIUM FOLINATE [Suspect]
     Active Substance: LEUCOVORIN CALCIUM
     Indication: COLON CANCER
     Dosage: OVER 2 HOURS
     Route: 042
     Dates: start: 20150401, end: 20150401
  3. CELEBREX [Suspect]
     Active Substance: CELECOXIB
     Indication: COLON CANCER
     Route: 048
     Dates: start: 20150414, end: 20150414
  4. ELOXATIN [Suspect]
     Active Substance: OXALIPLATIN
     Indication: COLON CANCER
     Route: 042
     Dates: start: 20150401, end: 20150401
  5. 5-FLUOROURACIL                     /00098801/ [Suspect]
     Active Substance: FLUOROURACIL
     Indication: COLON CANCER
     Route: 040
     Dates: start: 20150401, end: 20150401

REACTIONS (3)
  - Diarrhoea [Recovered/Resolved]
  - Oral candidiasis [Unknown]
  - Hypokalaemia [Recovered/Resolved]

NARRATIVE: CASE EVENT DATE: 20150414
